FAERS Safety Report 17544874 (Version 3)
Quarter: 2020Q2

REPORT INFORMATION
  Report Type: Spontaneous
  Country: US (occurrence: US)
  Receive Date: 20200316
  Receipt Date: 20200427
  Transmission Date: 20200713
  Serious: Yes (Hospitalization)
  Sender: FDA-Public Use
  Company Number: US-VERTEX PHARMACEUTICALS-2020-005408

PATIENT
  Age: 37 Year
  Sex: Male

DRUGS (10)
  1. ADVAIR HFA [Concomitant]
     Active Substance: FLUTICASONE PROPIONATE\SALMETEROL XINAFOATE
  2. NOVOLOG [Concomitant]
     Active Substance: INSULIN ASPART
  3. AZITHROMYCIN ANHYDROUS. [Concomitant]
     Active Substance: AZITHROMYCIN ANHYDROUS
  4. TRIKAFTA [Suspect]
     Active Substance: ELEXACAFTOR\IVACAFTOR\TEZACAFTOR
     Indication: CYSTIC FIBROSIS
     Dosage: 100 MG/50 MG/75 MG AND 150MG, BID
     Route: 048
     Dates: start: 20200106
  5. CIPROFLOXACIN. [Concomitant]
     Active Substance: CIPROFLOXACIN
  6. HYDROCODONE BITARTRATE AND ACETAMINOPHEN [Concomitant]
     Active Substance: ACETAMINOPHEN\HYDROCODONE BITARTRATE
  7. ESCITALOPRAM [Concomitant]
     Active Substance: ESCITALOPRAM OXALATE
  8. PROAIR HFA [Concomitant]
     Active Substance: ALBUTEROL SULFATE
  9. LANTUS [Concomitant]
     Active Substance: INSULIN GLARGINE
  10. CEPHALEXIN [CEFALEXIN] [Concomitant]
     Active Substance: CEPHALEXIN

REACTIONS (2)
  - Influenza [Unknown]
  - Influenza A virus test positive [Recovered/Resolved]

NARRATIVE: CASE EVENT DATE: 20200201
